FAERS Safety Report 14309041 (Version 3)
Quarter: 2018Q1

REPORT INFORMATION
  Report Type: Report from Study
  Country: CA (occurrence: CA)
  Receive Date: 20171220
  Receipt Date: 20180202
  Transmission Date: 20180509
  Serious: Yes (Other)
  Sender: FDA-Public Use
  Company Number: PHHY2017CA164614

PATIENT
  Age: 38 Year
  Sex: Female

DRUGS (1)
  1. GILENYA [Suspect]
     Active Substance: FINGOLIMOD HYDROCHLORIDE
     Indication: PRODUCT USED FOR UNKNOWN INDICATION
     Dosage: UNK
     Route: 048
     Dates: start: 20171016

REACTIONS (13)
  - Pain [Unknown]
  - Joint stiffness [Unknown]
  - Headache [Unknown]
  - Dyspnoea [Unknown]
  - Hemianaesthesia [Unknown]
  - Arthralgia [Unknown]
  - Neck pain [Unknown]
  - Pain in extremity [Unknown]
  - Vision blurred [Unknown]
  - Nervousness [Unknown]
  - Migraine [Unknown]
  - Influenza [Unknown]
  - Sneezing [Unknown]

NARRATIVE: CASE EVENT DATE: 20171212
